FAERS Safety Report 13442187 (Version 1)
Quarter: 2017Q2

REPORT INFORMATION
  Report Type: Spontaneous
  Country: US (occurrence: US)
  Receive Date: 20170414
  Receipt Date: 20170414
  Transmission Date: 20170830
  Serious: Yes (Hospitalization)
  Sender: FDA-Public Use
  Company Number: US-BION-006183

PATIENT
  Age: 37 Year
  Sex: Female

DRUGS (1)
  1. LOPERAMIDE HYDROCHLORIDE TABLET 2 MG [Suspect]
     Active Substance: LOPERAMIDE HYDROCHLORIDE
     Dosage: APPROXIMATELY 200 TABLETS OF 2 MG

REACTIONS (6)
  - Intentional overdose [Unknown]
  - Suicide attempt [Unknown]
  - Electrocardiogram QT prolonged [Recovered/Resolved]
  - Toxicity to various agents [None]
  - Stress cardiomyopathy [Unknown]
  - Loss of consciousness [Recovered/Resolved]
